FAERS Safety Report 18201886 (Version 1)
Quarter: 2020Q3

REPORT INFORMATION
  Report Type: Spontaneous
  Country: IE (occurrence: IE)
  Receive Date: 20200827
  Receipt Date: 20200827
  Transmission Date: 20201103
  Serious: Yes (Death)
  Sender: FDA-Public Use
  Company Number: IE-FERRINGPH-2020FE05766

PATIENT
  Age: 67 Year
  Sex: Female

DRUGS (2)
  1. DESMOTABS MELT [Suspect]
     Active Substance: DESMOPRESSIN
     Indication: ENURESIS
     Dosage: 240 UG, DAILY
     Route: 048
     Dates: start: 20200207, end: 20200208
  2. CARBAMAZEPINE. [Concomitant]
     Active Substance: CARBAMAZEPINE
     Indication: EPILEPSY

REACTIONS (4)
  - Epilepsy [Fatal]
  - Contraindicated product administered [Unknown]
  - Off label use [Unknown]
  - Labelled drug-drug interaction medication error [Unknown]

NARRATIVE: CASE EVENT DATE: 20200207
